FAERS Safety Report 5557945-9 (Version None)
Quarter: 2007Q4

REPORT INFORMATION
  Report Type: 
  Country: None (occurrence: None)
  Receive Date: 20071214
  Receipt Date: 20071205
  Transmission Date: 20080405
  Serious: Yes (Hospitalization, Other)
  Sender: FDA-Public Use
  Company Number: GB-ASTRAZENECA-2007GB02496

PATIENT
  Age: 73 Year
  Sex: Male

DRUGS (6)
  1. QUETIAPINE [Suspect]
     Indication: PSYCHOTIC DISORDER
     Route: 048
     Dates: start: 20071012
  2. QUETIAPINE [Suspect]
     Indication: VASCULAR DEMENTIA
     Route: 048
     Dates: start: 20071012
  3. CLOPIDOGREL [Concomitant]
     Route: 048
  4. KEPPRA [Concomitant]
     Indication: EPILEPSY
     Route: 048
  5. LANSOPRAZOLE [Concomitant]
     Route: 048
  6. VALSARTAN [Concomitant]
     Route: 048

REACTIONS (3)
  - BLOOD GLUCOSE INCREASED [None]
  - LOSS OF CONSCIOUSNESS [None]
  - TROPONIN T INCREASED [None]
